FAERS Safety Report 18562619 (Version 2)
Quarter: 2020Q4

REPORT INFORMATION
  Report Type: Spontaneous
  Country: JP (occurrence: JP)
  Receive Date: 20201201
  Receipt Date: 20201231
  Transmission Date: 20210114
  Serious: Yes (Death, Hospitalization, Other)
  Sender: FDA-Public Use
  Company Number: JP-ROCHE-2723788

PATIENT
  Age: 74 Year
  Sex: Male
  Weight: 42 kg

DRUGS (3)
  1. TECENTRIQ [Suspect]
     Active Substance: ATEZOLIZUMAB
     Indication: HEPATOCELLULAR CARCINOMA
     Dosage: DATE OF THE MOST RECENT DOSE RECEIVED PRIOR TO THE EVENT ONSET: 02/NOV/2020
     Route: 041
     Dates: start: 20201102
  2. AVASTIN [Suspect]
     Active Substance: BEVACIZUMAB
     Indication: HEPATOCELLULAR CARCINOMA
     Dosage: DATE OF THE MOST RECENT DOSE RECEIVED PRIOR TO THE EVENT ONSET: 02/NOV/2020
     Route: 041
     Dates: start: 20201102
  3. VEMLIDY [Concomitant]
     Active Substance: TENOFOVIR ALAFENAMIDE FUMARATE
     Dosage: THE FRACTIONATION DOSE FREQUENCY  UNCERTAIN.
     Route: 048
     Dates: start: 20180514, end: 20201107

REACTIONS (4)
  - Ileus paralytic [Recovering/Resolving]
  - Disease progression [Fatal]
  - Oesophageal varices haemorrhage [Recovered/Resolved]
  - Portal hypertension [Unknown]

NARRATIVE: CASE EVENT DATE: 20201124
